FAERS Safety Report 4342837-3 (Version None)
Quarter: 2004Q2

REPORT INFORMATION
  Report Type: 
  Country: None (occurrence: None)
  Receive Date: 20040416
  Receipt Date: 20040329
  Transmission Date: 20050107
  Serious: Yes (Hospitalization, Other)
  Sender: FDA-Public Use
  Company Number: 200417570BWH

PATIENT
  Age: 21 Year
  Sex: Female

DRUGS (3)
  1. MYCELEX [Suspect]
     Dosage: 30 MG, TOTAL DAILY, ORAL
     Route: 048
     Dates: start: 20040312
  2. SEROQUEL [Suspect]
     Dosage: ORAL
     Route: 048
  3. ZYPREXA [Concomitant]

REACTIONS (3)
  - CHEST PAIN [None]
  - DRUG INTERACTION [None]
  - MUSCLE TIGHTNESS [None]
